FAERS Safety Report 8462601-3 (Version None)
Quarter: 2012Q2

REPORT INFORMATION
  Report Type: 
  Country: None (occurrence: None)
  Receive Date: 20120625
  Receipt Date: 20120613
  Transmission Date: 20120825
  Serious: Yes (Hospitalization, Other)
  Sender: FDA-Public Use
  Company Number: JP-VERTEX PHARMACEUTICALS INC.-AE-2012-008971

PATIENT
  Age: 62 Year
  Sex: Male

DRUGS (9)
  1. TELAVIC (TELAPREVIR) [Suspect]
     Indication: HEPATITIS C
     Route: 048
     Dates: start: 20120418, end: 20120425
  2. REBETOL [Concomitant]
     Route: 048
     Dates: start: 20120515
  3. MALTOSE [Concomitant]
     Dates: start: 20120425, end: 20120501
  4. TELAVIC (TELAPREVIR) [Suspect]
     Route: 048
     Dates: start: 20120426
  5. REBETOL [Concomitant]
     Route: 048
     Dates: start: 20120508, end: 20120508
  6. REBETOL [Concomitant]
     Indication: HEPATITIS C
     Route: 048
     Dates: start: 20120418, end: 20120507
  7. MOTILIUM [Concomitant]
     Route: 048
     Dates: start: 20120420
  8. REBETOL [Concomitant]
     Route: 048
     Dates: start: 20120509, end: 20120514
  9. PEGINTERFERON ALFA-2B [Concomitant]
     Indication: HEPATITIS C
     Route: 058
     Dates: start: 20120418

REACTIONS (7)
  - MALAISE [None]
  - ANAEMIA [None]
  - PLATELET COUNT DECREASED [None]
  - WHITE BLOOD CELL COUNT DECREASED [None]
  - DECREASED APPETITE [None]
  - VOMITING [None]
  - NAUSEA [None]
